FAERS Safety Report 11516515 (Version 1)
Quarter: 2015Q3

REPORT INFORMATION
  Report Type: Spontaneous
  Country: IT (occurrence: IT)
  Receive Date: 20150917
  Receipt Date: 20150917
  Transmission Date: 20151125
  Serious: Yes (Hospitalization)
  Sender: FDA-Public Use
  Company Number: IT-ABBVIE-15P-083-1464715-00

PATIENT
  Age: 48 Year
  Sex: Male

DRUGS (4)
  1. DEPAKIN [Suspect]
     Active Substance: VALPROATE SODIUM
     Indication: OBSESSIVE-COMPULSIVE DISORDER
     Route: 048
     Dates: start: 20150101
  2. RIVOTRIL [Suspect]
     Active Substance: CLONAZEPAM
     Indication: PRODUCT USED FOR UNKNOWN INDICATION
     Dosage: ORAL DROPS SOLUTION
     Route: 048
     Dates: start: 20150327, end: 20150327
  3. DEPAKIN [Suspect]
     Active Substance: VALPROATE SODIUM
     Route: 048
     Dates: start: 20150327, end: 20150327
  4. ZYPADHERA [Concomitant]
     Active Substance: OLANZAPINE PAMOATE
     Indication: PRODUCT USED FOR UNKNOWN INDICATION
     Dates: start: 20150101

REACTIONS (3)
  - Ataxia [Recovered/Resolved]
  - Sopor [Recovered/Resolved]
  - Psychomotor retardation [Recovered/Resolved]

NARRATIVE: CASE EVENT DATE: 20150327
